FAERS Safety Report 14297895 (Version 3)
Quarter: 2018Q1

REPORT INFORMATION
  Report Type: Spontaneous
  Country: US (occurrence: US)
  Receive Date: 20171218
  Receipt Date: 20180220
  Transmission Date: 20180509
  Serious: Yes (Other)
  Sender: FDA-Public Use
  Company Number: US-AMGEN-USASP2017184739

PATIENT
  Age: 71 Year
  Sex: Female
  Weight: 56.5 kg

DRUGS (22)
  1. PROLIA [Suspect]
     Active Substance: DENOSUMAB
     Indication: OSTEOPOROSIS POSTMENOPAUSAL
     Dosage: 60 MG/ML, Q6MO
     Route: 065
     Dates: start: 20171115
  2. MAGNESIUM [Concomitant]
     Active Substance: MAGNESIUM
  3. PROLIA [Suspect]
     Active Substance: DENOSUMAB
     Indication: OSTEOPENIA
  4. LIORESAL [Concomitant]
     Active Substance: BACLOFEN
     Dosage: 10 MG, AS NECESSARY
     Route: 048
  5. LIORESAL [Concomitant]
     Active Substance: BACLOFEN
     Dosage: 5 MG, QD
     Route: 048
  6. CALMAG THINS [Concomitant]
     Dosage: 200 MG, QMO
     Route: 048
  7. OCUVITE [Concomitant]
     Active Substance: VITAMINS
     Dosage: 1 DF, QD
     Route: 048
  8. L METHYL MC NAC [Concomitant]
     Dosage: 600-2-6 MG TABLET
     Route: 048
  9. CALCIUM [Concomitant]
     Active Substance: CALCIUM
     Dosage: 50 MG, UNK
     Route: 048
  10. THERATEARS [Concomitant]
     Active Substance: CARBOXYMETHYLCELLULOSE SODIUM
     Dosage: UNK
  11. THERAGRAN [Concomitant]
     Active Substance: VITAMINS
     Dosage: 1 DF, QD
     Route: 048
  12. SOY ISOFLAVONE COMPLEX [Concomitant]
     Dosage: 2000 MG, UNK
     Route: 048
  13. BENADRYL [Concomitant]
     Active Substance: DIPHENHYDRAMINE HYDROCHLORIDE
     Indication: URINARY TRACT INFECTION
     Dosage: UNK
  14. SACCHAROMYCES BOULARDII [Concomitant]
     Active Substance: SACCHAROMYCES CEREVISIAE
     Route: 048
  15. SENOKOT [Concomitant]
     Active Substance: SENNOSIDES
     Dosage: 8.6 MG, QD
     Route: 048
  16. VITAMIN K2 [Concomitant]
     Active Substance: MENAQUINONE 6
     Dosage: 45 MUG, UNK
     Route: 048
  17. PROLIA [Suspect]
     Active Substance: DENOSUMAB
     Indication: OSTEOPOROSIS
  18. DULERA [Concomitant]
     Active Substance: FORMOTEROL FUMARATE DIHYDRATE\MOMETASONE FUROATE
     Dosage: 2 DF (5 MCG TO 100 MCG), BID
  19. BREO ELLIPTA [Concomitant]
     Active Substance: FLUTICASONE FUROATE\VILANTEROL TRIFENATATE
     Dosage: 25 MUG TO 100 MUG, QD
     Dates: end: 20171205
  20. VITAMIN D3 [Concomitant]
     Active Substance: CHOLECALCIFEROL
     Dosage: 2000 UNIT, QD
     Route: 048
  21. VITAMIN B6 [Concomitant]
     Active Substance: PYRIDOXINE HYDROCHLORIDE
     Dosage: 100 MG, QD
     Route: 048
  22. CYANOCOBALAMIN. [Concomitant]
     Active Substance: CYANOCOBALAMIN
     Dosage: 1000 MUG, QD
     Route: 048

REACTIONS (30)
  - Dizziness [Unknown]
  - Arthralgia [Not Recovered/Not Resolved]
  - Constipation [Unknown]
  - Pain in extremity [Not Recovered/Not Resolved]
  - Hyperhidrosis [Recovered/Resolved]
  - Headache [Not Recovered/Not Resolved]
  - Chest discomfort [Not Recovered/Not Resolved]
  - Tachycardia [Not Recovered/Not Resolved]
  - Renal impairment [Unknown]
  - Dry mouth [Not Recovered/Not Resolved]
  - Fall [Unknown]
  - Bladder irritation [Unknown]
  - Heart rate irregular [Recovered/Resolved]
  - Blood pressure decreased [Unknown]
  - Burning sensation [Unknown]
  - Hypothyroidism [Unknown]
  - Tremor [Not Recovered/Not Resolved]
  - Dysuria [Unknown]
  - Leukaemoid reaction [Not Recovered/Not Resolved]
  - Vision blurred [Not Recovered/Not Resolved]
  - Micturition urgency [Unknown]
  - Paraesthesia oral [Recovering/Resolving]
  - Palpitations [Not Recovered/Not Resolved]
  - Dry eye [Not Recovered/Not Resolved]
  - Cataract [Not Recovered/Not Resolved]
  - Fatigue [Not Recovered/Not Resolved]
  - Cough [Not Recovered/Not Resolved]
  - Paraesthesia [Not Recovered/Not Resolved]
  - Neuropathy peripheral [Not Recovered/Not Resolved]
  - Back pain [Not Recovered/Not Resolved]

NARRATIVE: CASE EVENT DATE: 2017
